FAERS Safety Report 16877640 (Version 12)
Quarter: 2022Q1

REPORT INFORMATION
  Report Type: Spontaneous
  Country: US (occurrence: US)
  Receive Date: 20191002
  Receipt Date: 20220119
  Transmission Date: 20220423
  Serious: Yes (Other)
  Sender: FDA-Public Use
  Company Number: US-PFIZER INC-2019425309

PATIENT
  Age: 40 Year
  Sex: Female

DRUGS (11)
  1. IBRANCE [Suspect]
     Active Substance: PALBOCICLIB
     Indication: Breast cancer
     Dosage: 125 MG
     Route: 048
     Dates: start: 2019, end: 2019
  2. IBRANCE [Suspect]
     Active Substance: PALBOCICLIB
     Dosage: 100 MG
     Route: 048
     Dates: start: 20190626, end: 2019
  3. IBRANCE [Suspect]
     Active Substance: PALBOCICLIB
     Dosage: 100 MG, DAILY
     Route: 048
     Dates: start: 20190729, end: 2019
  4. IBRANCE [Suspect]
     Active Substance: PALBOCICLIB
     Dosage: 75 MG
     Route: 048
     Dates: start: 2019
  5. IBRANCE [Suspect]
     Active Substance: PALBOCICLIB
     Dosage: 75 MG, CYCLIC (21 DAYS ON AND 7 DAYS OFF)
     Route: 048
     Dates: start: 202007
  6. IBRANCE [Suspect]
     Active Substance: PALBOCICLIB
     Dosage: 75 MG, CYCLIC (21 DAYS ON AND 7 DAYS OFF)
     Route: 048
     Dates: start: 20210426, end: 202107
  7. IBRANCE [Suspect]
     Active Substance: PALBOCICLIB
     Dosage: 75 MG, CYCLIC (21 DAYS ON AND 7 DAYS OFF)
     Route: 048
     Dates: start: 20210727, end: 2021
  8. IBRANCE [Suspect]
     Active Substance: PALBOCICLIB
     Dosage: 75 MG, CYCLIC (21 DAYS ON AND 7 DAYS OFF)
     Route: 048
     Dates: start: 2021, end: 202109
  9. IBRANCE [Suspect]
     Active Substance: PALBOCICLIB
     Dosage: 75 MG, CYCLIC (DAILY, 21 DAYS ON AND 7 DAYS OFF)
     Route: 048
     Dates: start: 2021, end: 202112
  10. IBRANCE [Suspect]
     Active Substance: PALBOCICLIB
     Dosage: 75 MG, CYCLIC (CYCLES OF 21 DAYS ON AND 7 DAYS OFF.)
     Route: 048
     Dates: start: 202201
  11. LETROZOLE [Concomitant]
     Active Substance: LETROZOLE
     Dosage: UNK

REACTIONS (6)
  - Neutrophil count decreased [Not Recovered/Not Resolved]
  - Fatigue [Not Recovered/Not Resolved]
  - White blood cell count decreased [Recovered/Resolved]
  - Glossodynia [Unknown]
  - Nausea [Unknown]
  - Product dose omission issue [Unknown]

NARRATIVE: CASE EVENT DATE: 20190101
